FAERS Safety Report 6534439-5 (Version None)
Quarter: 2009Q4

REPORT INFORMATION
  Report Type: 
  Country: None (occurrence: None)
  Receive Date: 20091228
  Receipt Date: 20090618
  Transmission Date: 20100525
  Serious: Yes (Other)
  Sender: FDA-Public Use
  Company Number: 20090254

PATIENT
  Age: 57 Year
  Sex: Female
  Weight: 82.5547 kg

DRUGS (4)
  1. VENOFER [Suspect]
     Indication: IRON DEFICIENCY ANAEMIA
     Dosage: 500MG IN 250ML NS
     Dates: start: 20090609, end: 20090616
  2. AMBIEN [Concomitant]
  3. COLCHICINE [Concomitant]
  4. ULTRAM [Concomitant]

REACTIONS (3)
  - ANAPHYLACTOID REACTION [None]
  - ARTHRALGIA [None]
  - SWELLING [None]
